FAERS Safety Report 5077492-0 (Version None)
Quarter: 2006Q3

REPORT INFORMATION
  Report Type: 
  Country: None (occurrence: None)
  Receive Date: 20060810
  Receipt Date: 20060315
  Transmission Date: 20061208
  Serious: No
  Sender: FDA-Public Use
  Company Number: US-GLAXOSMITHKLINE-A0597665A

PATIENT
  Age: 82 Year
  Sex: Female

DRUGS (8)
  1. PAROXETINE HCL [Suspect]
     Indication: DEPRESSION
     Dosage: 40MG PER DAY
     Route: 048
     Dates: start: 20050101
  2. ALPRAZOLAM [Concomitant]
  3. HYDROCHLOROTHIAZIDE [Concomitant]
  4. PIROXICAM [Concomitant]
  5. ZOCOR [Concomitant]
  6. COREG [Concomitant]
  7. VITAMINS [Concomitant]
  8. IRON TABLETS [Concomitant]

REACTIONS (1)
  - DRUG INEFFECTIVE [None]
